FAERS Safety Report 22328144 (Version 3)
Quarter: 2023Q4

REPORT INFORMATION
  Report Type: Spontaneous
  Country: CA (occurrence: CA)
  Receive Date: 20230516
  Receipt Date: 20231013
  Transmission Date: 20240110
  Serious: Yes (Other)
  Sender: FDA-Public Use
  Company Number: CA-CELLTRION INC.-2021CA012719

PATIENT

DRUGS (22)
  1. INFLECTRA [Suspect]
     Active Substance: INFLIXIMAB-DYYB
     Indication: Rheumatoid arthritis
     Dosage: 200 MG AT WEEK 0, 2, 6, THEN EVERY 8 WEEKS
     Route: 042
     Dates: start: 20171025
  2. INFLECTRA [Suspect]
     Active Substance: INFLIXIMAB-DYYB
     Dosage: 200 MG AT WEEK 0, 2, 6, THEN EVERY 8 WEEKS
     Route: 042
     Dates: start: 20210630
  3. INFLECTRA [Suspect]
     Active Substance: INFLIXIMAB-DYYB
     Dosage: 200 MG AT WEEK 0, 2, 6, THEN EVERY 8 WEEKS
     Route: 042
     Dates: start: 20220608
  4. INFLECTRA [Suspect]
     Active Substance: INFLIXIMAB-DYYB
     Dosage: 200 MG AT WEEK 0, 2, 6, THEN EVERY 8 WEEKS
     Route: 042
     Dates: start: 20230117
  5. INFLECTRA [Suspect]
     Active Substance: INFLIXIMAB-DYYB
     Dosage: 200 MG AT WEEK 0, 2, 6, THEN EVERY 8 WEEKS
     Route: 042
     Dates: start: 20230314
  6. INFLECTRA [Suspect]
     Active Substance: INFLIXIMAB-DYYB
     Dosage: 200MG, 11 WEEKS AND 1 DAY AFTER LAST INFUSION
     Route: 042
     Dates: start: 20230531
  7. INFLECTRA [Suspect]
     Active Substance: INFLIXIMAB-DYYB
     Dosage: 200 MG, WEEK 0, 2, 6, THEN EVERY 8 WEEKS
     Route: 042
     Dates: start: 20230918
  8. ENBREL [Concomitant]
     Active Substance: ETANERCEPT
     Dosage: 50 MG, WEEKLY
     Route: 042
     Dates: start: 2017
  9. FOLIC ACID [Concomitant]
     Active Substance: FOLIC ACID
     Dosage: UNK
  10. FOLIC ACID [Concomitant]
     Active Substance: FOLIC ACID
     Dosage: 1 DF
  11. FOLIC ACID [Concomitant]
     Active Substance: FOLIC ACID
     Dosage: 1 DF
  12. HYDROXYCHLOROQUINE [Concomitant]
     Active Substance: HYDROXYCHLOROQUINE
     Dosage: 200 MG
  13. HYDROXYCHLOROQUINE [Concomitant]
     Active Substance: HYDROXYCHLOROQUINE
     Dosage: 200 MG
  14. METHOTREXATE SODIUM [Concomitant]
     Active Substance: METHOTREXATE SODIUM
     Dosage: 20 MG, WEEKLY
     Route: 058
  15. NAPROXEN [Concomitant]
     Active Substance: NAPROXEN
     Dosage: UNK
  16. NAPROXEN [Concomitant]
     Active Substance: NAPROXEN
     Dosage: 1 DF
  17. NAPROXEN [Concomitant]
     Active Substance: NAPROXEN
     Dosage: 1 DF
  18. PANTOPRAZOLE [Concomitant]
     Active Substance: PANTOPRAZOLE
     Dosage: UNK
  19. PANTOPRAZOLE [Concomitant]
     Active Substance: PANTOPRAZOLE
     Dosage: 1 DF
  20. PANTOPRAZOLE [Concomitant]
     Active Substance: PANTOPRAZOLE
     Dosage: 1 DF
  21. ERGOCALCIFEROL [Concomitant]
     Active Substance: ERGOCALCIFEROL
     Dosage: UNK
  22. ERGOCALCIFEROL [Concomitant]
     Active Substance: ERGOCALCIFEROL
     Dosage: 1 DF

REACTIONS (5)
  - Limb operation [Unknown]
  - Condition aggravated [Recovering/Resolving]
  - Tooth disorder [Unknown]
  - Off label use [Unknown]
  - Intentional product use issue [Unknown]

NARRATIVE: CASE EVENT DATE: 20210101
